FAERS Safety Report 10993857 (Version 1)
Quarter: 2015Q2

REPORT INFORMATION
  Report Type: Report from Study
  Country: AU (occurrence: None)
  Receive Date: 20150403
  Receipt Date: 20150403
  Transmission Date: 20150821
  Serious: Yes (Other)
  Sender: FDA-Public Use
  Company Number: 2014-20553

PATIENT
  Age: 66 Year
  Sex: Female

DRUGS (1)
  1. EYLEA [Suspect]
     Active Substance: AFLIBERCEPT
     Indication: NEOVASCULAR AGE-RELATED MACULAR DEGENERATION
     Dosage: Q3MON, OD
     Route: 031
     Dates: start: 201310

REACTIONS (5)
  - Macular oedema [None]
  - Inappropriate schedule of drug administration [None]
  - Cataract [None]
  - Eye pain [None]
  - Ocular hyperaemia [None]

NARRATIVE: CASE EVENT DATE: 201409
